FAERS Safety Report 7876284-4 (Version None)
Quarter: 2011Q4

REPORT INFORMATION
  Report Type: 
  Country: None (occurrence: None)
  Receive Date: 20111031
  Receipt Date: 20111024
  Transmission Date: 20120403
  Serious: Yes (Death, Other)
  Sender: FDA-Public Use
  Company Number: FR-MERCK-1005FRA00110

PATIENT
  Age: 67 Year
  Sex: Male

DRUGS (5)
  1. REPAGLINIDE [Concomitant]
     Route: 048
     Dates: end: 20100115
  2. JANUVIA [Suspect]
     Indication: TYPE 2 DIABETES MELLITUS
     Route: 048
     Dates: start: 20100116, end: 20100322
  3. METFORMIN [Concomitant]
     Indication: TYPE 2 DIABETES MELLITUS
     Route: 048
     Dates: end: 20100115
  4. METFORMIN [Concomitant]
     Route: 048
     Dates: start: 20100116
  5. REPAGLINIDE [Concomitant]
     Indication: TYPE 2 DIABETES MELLITUS
     Route: 065
     Dates: start: 20100116

REACTIONS (1)
  - METASTASES TO LIVER [None]
